FAERS Safety Report 7732352-9 (Version None)
Quarter: 2011Q3

REPORT INFORMATION
  Report Type: 
  Country: None (occurrence: None)
  Receive Date: 20110906
  Receipt Date: 20110830
  Transmission Date: 20111222
  Serious: Yes (Other)
  Sender: FDA-Public Use
  Company Number: FR-PFIZER INC-2011201288

PATIENT
  Age: 46 Year
  Sex: Female

DRUGS (14)
  1. NORVIR [Suspect]
     Dosage: 1 DF, 2X/DAY
     Route: 048
     Dates: start: 20070401
  2. DEPAKENE [Suspect]
     Dosage: 1000 MG, 1X/DAY
     Route: 048
     Dates: start: 20060101
  3. VALACYCLOVIR HYDROCHLORIDE [Concomitant]
     Dosage: 1 DF, 1X/DAY
     Dates: start: 20060101
  4. NEULEPTIL [Concomitant]
     Dosage: 5 GTT, 2X/DAY
  5. ISENTRESS [Suspect]
     Dosage: 400 MG, 2X/DAY
     Route: 048
     Dates: start: 20070401
  6. SPECIAFOLDINE [Concomitant]
     Dosage: 1 DF, 1X/DAY
  7. FERROUS SULFATE TAB [Concomitant]
     Dosage: 1 DF, 1X/DAY
  8. VFEND [Suspect]
     Indication: ASPERGILLOSIS
     Dosage: 400 MG, 1X/DAY
     Route: 048
     Dates: start: 20060621, end: 20110211
  9. TRILEPTAL [Concomitant]
     Dosage: 450 MG, 1X/DAY
     Route: 048
     Dates: start: 20061101
  10. CLONAZEPAM [Concomitant]
     Dosage: 3/4, 1X/DAY
  11. DITROPAN [Concomitant]
     Dosage: 2 DF, 2X/DAY
  12. TRUVADA [Suspect]
     Dosage: 1 DF, 1X/DAY
     Route: 048
     Dates: start: 20070101
  13. PREZISTA [Suspect]
     Dosage: 600 MG, 2X/DAY
     Route: 048
     Dates: start: 20070401
  14. TRILEPTAL [Concomitant]
     Dosage: UNK
     Route: 048
     Dates: start: 20061101

REACTIONS (1)
  - PSEUDOEPITHELIOMATOUS HYPERPLASIA [None]
